FAERS Safety Report 8106994-5 (Version None)
Quarter: 2012Q1

REPORT INFORMATION
  Report Type: 
  Country: None (occurrence: None)
  Receive Date: 20120202
  Receipt Date: 20120202
  Transmission Date: 20120608
  Serious: Yes (Other)
  Sender: FDA-Public Use
  Company Number: None

PATIENT
  Age: 83 Year
  Sex: Male
  Weight: 106.14 kg

DRUGS (1)
  1. PANITUMUMAB [Suspect]
     Indication: BILE DUCT CANCER
     Dosage: 9 MG/M2
     Route: 041

REACTIONS (6)
  - DISCOMFORT [None]
  - DRY SKIN [None]
  - PRODUCT QUALITY ISSUE [None]
  - RASH ERYTHEMATOUS [None]
  - PRURITUS [None]
  - RASH PUSTULAR [None]
